FAERS Safety Report 10820579 (Version 1)
Quarter: 2015Q1

REPORT INFORMATION
  Report Type: Spontaneous
  Country: BR (occurrence: None)
  Receive Date: 20150213
  Receipt Date: 20150213
  Transmission Date: 20150721
  Serious: Yes (Hospitalization)
  Sender: FDA-Public Use
  Company Number: 2013BI069086

PATIENT
  Sex: Female

DRUGS (4)
  1. TYSABRI [Suspect]
     Active Substance: NATALIZUMAB
     Indication: MULTIPLE SCLEROSIS
     Route: 042
     Dates: start: 20120920, end: 20150115
  2. SERTRALINE [Concomitant]
     Active Substance: SERTRALINE HYDROCHLORIDE
  3. CAPOXONE [Concomitant]
  4. TANDRILAX [Concomitant]

REACTIONS (12)
  - Spinal pain [None]
  - General symptom [None]
  - Fatigue [None]
  - Gait disturbance [None]
  - Decreased appetite [None]
  - Amnesia [None]
  - Sensory disturbance [None]
  - Drug ineffective [None]
  - Asthenia [None]
  - Inflammation [None]
  - Burning sensation [None]
  - Depression [None]

NARRATIVE: CASE EVENT DATE: 201412
